FAERS Safety Report 9129306 (Version 1)
Quarter: 2013Q1

REPORT INFORMATION
  Report Type: Spontaneous
  Country: US (occurrence: US)
  Receive Date: 20130125
  Receipt Date: 20130125
  Transmission Date: 20140127
  Serious: Yes (Hospitalization)
  Sender: FDA-Public Use
  Company Number: US-ABBOTT-13P-163-1037744-00

PATIENT
  Age: 61 None
  Sex: Male
  Weight: 86.26 kg

DRUGS (5)
  1. LUPRON DEPOT [Suspect]
     Indication: PROSTATE CANCER
     Dates: start: 201112, end: 201207
  2. XGEVA [Suspect]
     Indication: PROSTATE CANCER
     Dosage: 2 SHOTS
     Dates: start: 20120921
  3. PROSCAR [Concomitant]
     Indication: PRODUCT USED FOR UNKNOWN INDICATION
  4. ULTRAM [Concomitant]
     Indication: PRODUCT USED FOR UNKNOWN INDICATION
  5. IBUPROFEN [Concomitant]
     Indication: PAIN

REACTIONS (7)
  - Pancreatitis [Recovering/Resolving]
  - Cholelithiasis [Recovered/Resolved]
  - Laboratory test abnormal [Recovering/Resolving]
  - White blood cell count increased [Recovering/Resolving]
  - Nausea [Recovered/Resolved]
  - Blood calcium decreased [Recovering/Resolving]
  - Device dislocation [Recovered/Resolved]
